FAERS Safety Report 9528145 (Version 1)
Quarter: 2013Q3

REPORT INFORMATION
  Report Type: Spontaneous
  Country: BE (occurrence: BE)
  Receive Date: 20130917
  Receipt Date: 20130917
  Transmission Date: 20140515
  Serious: Yes (Other)
  Sender: FDA-Public Use
  Company Number: BE-JNJFOC-20130907957

PATIENT
  Sex: Male

DRUGS (6)
  1. XARELTO [Suspect]
     Indication: CEREBROVASCULAR ACCIDENT PROPHYLAXIS
     Route: 048
     Dates: start: 20130510
  2. XARELTO [Suspect]
     Indication: ATRIAL FIBRILLATION
     Route: 048
     Dates: start: 20130510
  3. LORMETAZEPAM [Concomitant]
     Route: 065
  4. CORDARONE [Concomitant]
     Route: 065
  5. COVERSYL [Concomitant]
     Route: 065
  6. GLYCERYL TRINITRATE [Concomitant]
     Indication: ANXIETY
     Route: 062

REACTIONS (1)
  - Renal impairment [Unknown]
